FAERS Safety Report 24003793 (Version 4)
Quarter: 2024Q3

REPORT INFORMATION
  Report Type: Spontaneous
  Country: US (occurrence: US)
  Receive Date: 20240624
  Receipt Date: 20240712
  Transmission Date: 20241016
  Serious: Yes (Other)
  Sender: ROCHE
  Company Number: US-ROCHE-10000002388

PATIENT
  Age: 63 Year
  Sex: Male

DRUGS (6)
  1. MABTHERA [Suspect]
     Active Substance: RITUXIMAB
     Indication: Mantle cell lymphoma
     Route: 065
  2. EVUSHELD [Concomitant]
     Active Substance: CILGAVIMAB\TIXAGEVIMAB
     Dates: start: 2022
  3. PAXLOVID [Concomitant]
     Active Substance: NIRMATRELVIR\RITONAVIR
  4. BENDAMUSTINE [Concomitant]
     Active Substance: BENDAMUSTINE
  5. PREDNISONE [Concomitant]
     Active Substance: PREDNISONE
  6. AZITHROMYCIN [Concomitant]
     Active Substance: AZITHROMYCIN

REACTIONS (5)
  - COVID-19 [Recovered/Resolved]
  - Secondary immunodeficiency [Recovered/Resolved]
  - Disease progression [Recovered/Resolved]
  - Viral vector shedding [Recovered/Resolved]
  - Drug ineffective [Unknown]
